FAERS Safety Report 7773799-4 (Version None)
Quarter: 2011Q3

REPORT INFORMATION
  Report Type: 
  Country: None (occurrence: None)
  Receive Date: 20110923
  Receipt Date: 20110916
  Transmission Date: 20111222
  Serious: Yes (Other)
  Sender: FDA-Public Use
  Company Number: ES-JNJFOC-20100702220

PATIENT
  Age: 65 Year
  Sex: Male

DRUGS (2)
  1. STELARA [Suspect]
     Indication: PSORIASIS
     Route: 058
     Dates: start: 20100501
  2. STELARA [Suspect]
     Route: 058

REACTIONS (5)
  - NEPHROLITHIASIS [None]
  - COUGH [None]
  - RENAL COLIC [None]
  - PYREXIA [None]
  - HAEMATURIA [None]
